FAERS Safety Report 9342374 (Version 1)
Quarter: 2013Q2

REPORT INFORMATION
  Report Type: Spontaneous
  Country: FR (occurrence: None)
  Receive Date: 20130607
  Receipt Date: 20130607
  Transmission Date: 20140414
  Serious: Yes (Hospitalization)
  Sender: FDA-Public Use
  Company Number: FK201301868

PATIENT
  Age: 62 Year
  Sex: Female

DRUGS (5)
  1. AMIODARONE HCL [Suspect]
     Indication: ARRHYTHMIA SUPRAVENTRICULAR
     Dosage: 200MG 5 DAY/WEEK
  2. BUDESONIDE [Suspect]
     Indication: ASTHMA
     Dosage: 400 UG/DAY
  3. BUDESONIDE [Suspect]
     Indication: RESPIRATORY FAILURE
     Dosage: 400 UG/DAY
  4. ITRACONAZOLE [Suspect]
     Indication: BRONCHOPULMONARY ASPERGILLOSIS ALLERGIC
     Dosage: 200 MG/DAY
  5. PREDNISOLONE (PREDNISOLONE) [Suspect]
     Indication: RESPIRATORY FAILURE
     Dosage: 20 MG/DAY, ORAL
     Route: 048

REACTIONS (6)
  - Thyroiditis [None]
  - Hepatic steatosis [None]
  - Cushing^s syndrome [None]
  - Hyperthyroidism [None]
  - Hepatosplenomegaly [None]
  - Hepatocellular injury [None]
